FAERS Safety Report 22640769 (Version 1)
Quarter: 2023Q2

REPORT INFORMATION
  Report Type: Spontaneous
  Country: UZ (occurrence: UZ)
  Receive Date: 20230626
  Receipt Date: 20230626
  Transmission Date: 20230721
  Serious: Yes (Hospitalization, Other)
  Sender: FDA-Public Use
  Company Number: UZ-MYLANLABS-2023M1064245

PATIENT
  Sex: Male

DRUGS (5)
  1. MOXIFLOXACIN [Suspect]
     Active Substance: MOXIFLOXACIN
     Indication: Tuberculosis
     Dosage: UNK (400)
     Route: 065
     Dates: start: 20230418, end: 20230608
  2. LINEZOLID [Suspect]
     Active Substance: LINEZOLID
     Indication: Tuberculosis
     Dosage: UNK (600)
     Route: 065
     Dates: start: 20230418, end: 20230608
  3. BEDAQUILINE [Suspect]
     Active Substance: BEDAQUILINE
     Indication: Tuberculosis
     Dosage: UNK (400 ONCE A DAY)
     Route: 065
     Dates: start: 20230418, end: 20230501
  4. BEDAQUILINE [Suspect]
     Active Substance: BEDAQUILINE
     Dosage: UNK (200 THREE TIMES PER WEEK)
     Route: 065
     Dates: start: 20230503, end: 20230608
  5. PRETOMANID [Suspect]
     Active Substance: PRETOMANID
     Indication: Tuberculosis
     Dosage: UNK (200)
     Route: 065
     Dates: start: 20230418, end: 20230608

REACTIONS (3)
  - Splenomegaly [Not Recovered/Not Resolved]
  - Cholecystitis [Not Recovered/Not Resolved]
  - Hepatitis toxic [Not Recovered/Not Resolved]
